FAERS Safety Report 18188228 (Version 17)
Quarter: 2025Q1

REPORT INFORMATION
  Report Type: Report from Study
  Country: US (occurrence: US)
  Receive Date: 20200824
  Receipt Date: 20250107
  Transmission Date: 20250409
  Serious: Yes (Other)
  Sender: TAKEDA
  Company Number: US-SHIRE-US202027164

PATIENT
  Age: 84 Year
  Sex: Female
  Weight: 81 kg

DRUGS (56)
  1. HUMAN IMMUNOGLOBULIN G [Suspect]
     Active Substance: HUMAN IMMUNOGLOBULIN G
     Indication: Congenital hypogammaglobulinaemia
     Dosage: 35 GRAM, Q4WEEKS
     Dates: start: 20191209
  2. HUMAN IMMUNOGLOBULIN G [Suspect]
     Active Substance: HUMAN IMMUNOGLOBULIN G
     Dosage: 30 GRAM, Q4WEEKS
     Dates: start: 20191210
  3. OMEPRAZOLE [Concomitant]
     Active Substance: OMEPRAZOLE
  4. FLUTICASONE PROPIONATE [Concomitant]
     Active Substance: FLUTICASONE PROPIONATE
  5. AMBIEN [Concomitant]
     Active Substance: ZOLPIDEM TARTRATE
  6. FAMOTIDINE [Concomitant]
     Active Substance: FAMOTIDINE
  7. SYSTANE (HYPROMELLOSE 2910 (4000 MPA.S)) [Concomitant]
     Active Substance: HYPROMELLOSE 2910 (4000 MPA.S)
  8. FISH OIL [Concomitant]
     Active Substance: FISH OIL
  9. VITAMIN C [Concomitant]
     Active Substance: ASCORBIC ACID
  10. XANAX [Concomitant]
     Active Substance: ALPRAZOLAM
  11. ALLOPURINOL [Concomitant]
     Active Substance: ALLOPURINOL
  12. PRAVASTATIN SODIUM [Concomitant]
     Active Substance: PRAVASTATIN SODIUM
  13. CEFUROXIME [Concomitant]
     Active Substance: CEFUROXIME
  14. METOPROLOL SUCCINATE [Concomitant]
     Active Substance: METOPROLOL SUCCINATE
  15. AMLODIPINE BESYLATE [Concomitant]
     Active Substance: AMLODIPINE BESYLATE
  16. CALCIUM\CHOLECALCIFEROL [Concomitant]
     Active Substance: CALCIUM\CHOLECALCIFEROL
  17. MUCINEX [Concomitant]
     Active Substance: GUAIFENESIN
  18. SYMBICORT [Concomitant]
     Active Substance: BUDESONIDE\FORMOTEROL FUMARATE DIHYDRATE
  19. Ponaris [Concomitant]
  20. AMOXICILLIN [Concomitant]
     Active Substance: AMOXICILLIN
  21. ACETAMINOPHEN [Concomitant]
     Active Substance: ACETAMINOPHEN
  22. DIPHENHYDRAMINE [Concomitant]
     Active Substance: DIPHENHYDRAMINE
  23. HEPARIN [Concomitant]
     Active Substance: HEPARIN SODIUM
  24. SODIUM CHLORIDE [Concomitant]
     Active Substance: SODIUM CHLORIDE
  25. SODIUM CHLORIDE [Concomitant]
     Active Substance: SODIUM CHLORIDE
  26. EPINEPHRINE [Concomitant]
     Active Substance: EPINEPHRINE
  27. RESTASIS [Concomitant]
     Active Substance: CYCLOSPORINE
  28. TRAMADOL [Concomitant]
     Active Substance: TRAMADOL
  29. ASPIRIN [Concomitant]
     Active Substance: ASPIRIN
  30. ALBUTEROL [Concomitant]
     Active Substance: ALBUTEROL
  31. ALBUTEROL\IPRATROPIUM [Concomitant]
     Active Substance: ALBUTEROL\IPRATROPIUM
  32. MIRALAX [Concomitant]
     Active Substance: POLYETHYLENE GLYCOL 3350
  33. VITAMIN D3 [Concomitant]
     Active Substance: CHOLECALCIFEROL
  34. TRAZODONE [Concomitant]
     Active Substance: TRAZODONE HYDROCHLORIDE
  35. BIOTIN [Concomitant]
     Active Substance: BIOTIN
  36. CHONDROITIN SULFATE (BOVINE)\GLUCOSAMINE HYDROCHLORIDE [Concomitant]
     Active Substance: CHONDROITIN SULFATE (BOVINE)\GLUCOSAMINE HYDROCHLORIDE
  37. LEVO T [Concomitant]
  38. ASCORBIC ACID\IRON [Concomitant]
     Active Substance: ASCORBIC ACID\IRON
  39. LORATADINE [Concomitant]
     Active Substance: LORATADINE
  40. AMLODIPINE BESYLATE\BENAZEPRIL HYDROCHLORIDE [Concomitant]
     Active Substance: AMLODIPINE BESYLATE\BENAZEPRIL HYDROCHLORIDE
  41. FLUBLOK [Concomitant]
     Active Substance: INFLUENZA A VIRUS A/CALIFORNIA/7/2009 (H1N1) RECOMBINANT HEMAGGLUTININ ANTIGEN\INFLUENZA A VIRUS A/V
  42. TRAMADOL HCL [Concomitant]
     Active Substance: TRAMADOL HYDROCHLORIDE
  43. ALBUTEROL SULFATE [Concomitant]
     Active Substance: ALBUTEROL SULFATE
  44. PREDNISONE [Concomitant]
     Active Substance: PREDNISONE
  45. ACIDOPHILUS [Concomitant]
     Active Substance: LACTOBACILLUS ACIDOPHILUS
  46. IRON [Concomitant]
     Active Substance: IRON
  47. ZINC [Concomitant]
     Active Substance: ZINC
  48. BENAZEPRIL [Concomitant]
     Active Substance: BENAZEPRIL HYDROCHLORIDE
  49. ASCORBIC ACID\IRON [Concomitant]
     Active Substance: ASCORBIC ACID\IRON
  50. VITAMIN B [Concomitant]
     Active Substance: VITAMIN B
  51. DIPHENHYDRAMINE HYDROCHLORIDE [Concomitant]
     Active Substance: DIPHENHYDRAMINE HYDROCHLORIDE
  52. TRAZODONE HCL [Concomitant]
     Active Substance: TRAZODONE HYDROCHLORIDE
  53. BENZONATATE [Concomitant]
     Active Substance: BENZONATATE
  54. ONDANSETRON HYDROCHLORIDE [Concomitant]
     Active Substance: ONDANSETRON HYDROCHLORIDE
  55. FLUTICASONE [Concomitant]
     Active Substance: FLUTICASONE
  56. HYOSCYAMINE SULFATE [Concomitant]
     Active Substance: HYOSCYAMINE SULFATE

REACTIONS (21)
  - Upper respiratory tract infection [Not Recovered/Not Resolved]
  - Head injury [Unknown]
  - Fall [Unknown]
  - Infusion related reaction [Recovered/Resolved]
  - Gastroenteritis viral [Unknown]
  - Gout [Unknown]
  - Upper limb fracture [Unknown]
  - Respiratory syncytial virus infection [Unknown]
  - Sensitive skin [Unknown]
  - Nasopharyngitis [Unknown]
  - Sinus congestion [Unknown]
  - Productive cough [Unknown]
  - Upper-airway cough syndrome [Unknown]
  - Sinusitis [Unknown]
  - Contusion [Unknown]
  - Peripheral coldness [Unknown]
  - Blood pressure increased [Unknown]
  - Pain in extremity [Unknown]
  - Arthralgia [Recovered/Resolved]
  - Tremor [Recovered/Resolved]
  - Chills [Recovered/Resolved]

NARRATIVE: CASE EVENT DATE: 20230606
